FAERS Safety Report 6359870-2 (Version None)
Quarter: 2009Q3

REPORT INFORMATION
  Report Type: 
  Country: None (occurrence: None)
  Receive Date: 20090917
  Receipt Date: 20090915
  Transmission Date: 20100115
  Serious: Yes (Hospitalization)
  Sender: FDA-Public Use
  Company Number: B0593769A

PATIENT
  Sex: Female

DRUGS (9)
  1. HYCAMTIN [Suspect]
     Route: 048
  2. DUPHALAC [Concomitant]
     Route: 048
  3. OXYCONTIN [Concomitant]
     Dosage: 10MG TWICE PER DAY
     Route: 048
  4. AFIPRAN [Concomitant]
     Route: 048
  5. ONDANSETRON [Concomitant]
     Route: 048
  6. OXYNORM [Concomitant]
     Route: 048
  7. ZOPICLONE [Concomitant]
     Dosage: 7.5MG PER DAY
     Route: 048
  8. SPIRIVA [Concomitant]
     Dosage: 18MCG PER DAY
     Route: 048
  9. ACETAMINOPHEN [Concomitant]
     Dosage: 1G FOUR TIMES PER DAY
     Route: 048

REACTIONS (1)
  - PNEUMOCYSTIS JIROVECI INFECTION [None]
